FAERS Safety Report 8378435-4 (Version None)
Quarter: 2012Q2

REPORT INFORMATION
  Report Type: 
  Country: None (occurrence: None)
  Receive Date: 20120522
  Receipt Date: 20110803
  Transmission Date: 20120825
  Serious: No
  Sender: FDA-Public Use
  Company Number: US-ASTRAZENECA-2011SE46701

PATIENT
  Age: 59 Year
  Sex: Female

DRUGS (14)
  1. SEROQUEL XR [Suspect]
     Route: 048
     Dates: start: 20090923
  2. LYRICA [Concomitant]
  3. DOCUSATE SODIUM [Concomitant]
  4. VOLTAREN [Concomitant]
  5. NAPROXEN [Concomitant]
  6. METFORMIN HCL [Concomitant]
  7. TRIAMCINOLONE ACETONIDE [Concomitant]
  8. OMEPRAZOLE [Suspect]
     Route: 048
     Dates: start: 20091222
  9. ACTOS [Concomitant]
  10. LOTRISONE [Concomitant]
  11. TYLENOL [Concomitant]
  12. NICOTINE [Concomitant]
  13. SIMVASTATIN [Concomitant]
  14. LANTUS [Concomitant]

REACTIONS (2)
  - PSORIASIS [None]
  - PAIN [None]
